FAERS Safety Report 8213026-7 (Version None)
Quarter: 2012Q1

REPORT INFORMATION
  Report Type: 
  Country: None (occurrence: None)
  Receive Date: 20120315
  Receipt Date: 20120305
  Transmission Date: 20120608
  Serious: Yes (Hospitalization, Congenital Anomaly, Other)
  Sender: FDA-Public Use
  Company Number: DE-TEVA-325926GER

PATIENT
  Age: 0 Year
  Sex: Male
  Weight: 2.98 kg

DRUGS (1)
  1. VALPROATE SODIUM [Suspect]
     Route: 064
     Dates: start: 20090614, end: 20100310

REACTIONS (6)
  - HYPOCALCAEMIA [None]
  - PERICARDIAL EFFUSION [None]
  - ANKYLOGLOSSIA CONGENITAL [None]
  - TRICUSPID VALVE INCOMPETENCE [None]
  - ATRIAL SEPTAL DEFECT [None]
  - PATENT DUCTUS ARTERIOSUS [None]
